FAERS Safety Report 11104956 (Version 1)
Quarter: 2015Q2

REPORT INFORMATION
  Report Type: Report from Study
  Country: US (occurrence: US)
  Receive Date: 20150511
  Receipt Date: 20150511
  Transmission Date: 20150821
  Serious: Yes (Hospitalization)
  Sender: FDA-Public Use
  Company Number: US-ACTELION-A-NJ2015-115958

PATIENT
  Age: 75 Year
  Sex: Female

DRUGS (3)
  1. VELETRI [Suspect]
     Active Substance: EPOPROSTENOL
     Dosage: 26 NG/KG, PER MIN
     Route: 042
  2. VELETRI [Suspect]
     Active Substance: EPOPROSTENOL
     Indication: PULMONARY ARTERIAL HYPERTENSION
     Dosage: 19 NG/KG, PER MIN
     Route: 042
     Dates: start: 20150316
  3. LASIX [Concomitant]
     Active Substance: FUROSEMIDE

REACTIONS (22)
  - Clostridium difficile colitis [Unknown]
  - Dyspnoea [Unknown]
  - Productive cough [Unknown]
  - Decreased appetite [Unknown]
  - Abdominal distension [Unknown]
  - Feeling abnormal [Unknown]
  - Hypotension [Recovering/Resolving]
  - Pallor [Unknown]
  - Abdominal discomfort [Unknown]
  - Asthenia [Unknown]
  - Hypersensitivity [Unknown]
  - Cough [Unknown]
  - Oliguria [Unknown]
  - Rash [Unknown]
  - Headache [Unknown]
  - Pulmonary arterial hypertension [Unknown]
  - Catheter site erythema [Unknown]
  - Fluid retention [Recovering/Resolving]
  - Oedema peripheral [Unknown]
  - Oedema [Recovering/Resolving]
  - Musculoskeletal pain [Unknown]
  - Nausea [Unknown]
